FAERS Safety Report 5048454-4 (Version None)
Quarter: 2006Q3

REPORT INFORMATION
  Report Type: 
  Country: None (occurrence: None)
  Receive Date: 20060705
  Receipt Date: 20060612
  Transmission Date: 20061208
  Serious: Yes (Hospitalization)
  Sender: FDA-Public Use
  Company Number: US200606003077

PATIENT
  Age: 16 Year
  Sex: Male

DRUGS (1)
  1. HUMATROPE [Suspect]
     Indication: GROWTH HORMONE DEFICIENCY
     Dates: start: 19920101, end: 20051101

REACTIONS (5)
  - ASTHMA [None]
  - BRONCHITIS [None]
  - DEPRESSION [None]
  - HEADACHE [None]
  - IMMUNE SYSTEM DISORDER [None]
